FAERS Safety Report 7717187-5 (Version None)
Quarter: 2011Q3

REPORT INFORMATION
  Report Type: 
  Country: None (occurrence: None)
  Receive Date: 20110826
  Receipt Date: 20110826
  Transmission Date: 20111222
  Serious: Yes (Hospitalization)
  Sender: FDA-Public Use
  Company Number: None

PATIENT
  Sex: Female
  Weight: 71.7 kg

DRUGS (3)
  1. CARBOPLATIN [Suspect]
     Dosage: 607 MG
     Dates: end: 20110801
  2. DOCETAXEL [Suspect]
     Dosage: 135 MG
     Dates: end: 20110801
  3. HERCEPTIN [Suspect]
     Dosage: 304 MG
     Dates: end: 20110808

REACTIONS (7)
  - BLOOD URINE PRESENT [None]
  - BLOOD PRESSURE DECREASED [None]
  - BACTERIAL TEST POSITIVE [None]
  - SEPSIS [None]
  - FATIGUE [None]
  - CHROMATURIA [None]
  - HYPOPHAGIA [None]
